FAERS Safety Report 8865561 (Version 1)
Quarter: 2012Q4

REPORT INFORMATION
  Report Type: 
  Country: US (occurrence: US)
  Receive Date: 20121024
  Receipt Date: 20121024
  Transmission Date: 20130627
  Serious: No
  Sender: FDA-Public Use
  Company Number: US-AMGEN-USASP2012003678

PATIENT
  Sex: Male

DRUGS (8)
  1. ENBREL [Suspect]
     Indication: PRODUCT USED FOR UNKNOWN INDICATION
     Dosage: 50 mg, qwk
     Route: 058
  2. PLAVIX [Concomitant]
     Dosage: 75 mg, UNK
  3. LIPITOR [Concomitant]
     Dosage: 10 mg, UNK
  4. NORVASC [Concomitant]
     Dosage: 2.5 mg, UNK
  5. LISINOPRIL [Concomitant]
     Dosage: 2.5 mg, UNK
  6. TOPROL [Concomitant]
     Dosage: 25 mg, UNK
  7. HYDROCHLOROTH [Concomitant]
     Dosage: 12.5 mg, UNK
  8. FISH OIL [Concomitant]

REACTIONS (2)
  - Condition aggravated [Unknown]
  - Tooth infection [Unknown]
